FAERS Safety Report 7687783-2 (Version None)
Quarter: 2011Q3

REPORT INFORMATION
  Report Type: 
  Country: None (occurrence: None)
  Receive Date: 20110817
  Receipt Date: 20110802
  Transmission Date: 20111222
  Serious: No
  Sender: FDA-Public Use
  Company Number: US-B.I. PHARMACEUTICALS,INC./RIDGEFIELD-2011-BP-18965BP

PATIENT
  Sex: Female

DRUGS (7)
  1. MULTAQ [Suspect]
     Indication: ATRIAL FIBRILLATION
     Dosage: 800 MG
     Route: 048
     Dates: start: 20110626
  2. AMARYL [Concomitant]
  3. BENICAR [Concomitant]
  4. DIGESTIVE ENZYMES [Concomitant]
  5. METFORMIN HCL [Concomitant]
  6. PRADAXA [Suspect]
  7. PROBIOTICS [Concomitant]

REACTIONS (3)
  - HEART RATE IRREGULAR [None]
  - ABDOMINAL DISCOMFORT [None]
  - TACHYCARDIA [None]
